FAERS Safety Report 7592445-6 (Version None)
Quarter: 2011Q2

REPORT INFORMATION
  Report Type: 
  Country: None (occurrence: None)
  Receive Date: 20110628
  Receipt Date: 20110617
  Transmission Date: 20111010
  Serious: Yes (Other)
  Sender: FDA-Public Use
  Company Number: 2011SP028562

PATIENT
  Sex: Female

DRUGS (2)
  1. PROVENTIL-HFA [Suspect]
     Indication: ASTHMA
  2. VENTOLIN HFA [Concomitant]

REACTIONS (2)
  - OFF LABEL USE [None]
  - ASTHMA [None]
